FAERS Safety Report 25486147 (Version 3)
Quarter: 2025Q4

REPORT INFORMATION
  Report Type: Spontaneous
  Country: BR (occurrence: BR)
  Receive Date: 20250626
  Receipt Date: 20251219
  Transmission Date: 20260117
  Serious: Yes (Other)
  Sender: JOHNSON AND JOHNSON
  Company Number: BR-JNJFOC-20250623210

PATIENT
  Age: 33 Year
  Sex: Male
  Weight: 76 kg

DRUGS (2)
  1. STELARA [Suspect]
     Active Substance: USTEKINUMAB
     Indication: Crohn^s disease
     Route: 040
  2. STELARA [Suspect]
     Active Substance: USTEKINUMAB
     Dosage: 130MG 3 IV VIALS ON WEEK 0
     Route: 040

REACTIONS (5)
  - Intestinal stenosis [Recovering/Resolving]
  - Fistula of small intestine [Recovering/Resolving]
  - Intestinal ulcer [Recovering/Resolving]
  - Bone metabolism disorder [Unknown]
  - Therapy cessation [Unknown]

NARRATIVE: CASE EVENT DATE: 20190101
